FAERS Safety Report 9198704 (Version 1)
Quarter: 2013Q1

REPORT INFORMATION
  Report Type: Report from Study
  Country: CA (occurrence: CA)
  Receive Date: 20130329
  Receipt Date: 20130329
  Transmission Date: 20140127
  Serious: Yes (Other)
  Sender: FDA-Public Use
  Company Number: CA-JNJFOC-20130311121

PATIENT
  Sex: Male
  Weight: 79.5 kg

DRUGS (2)
  1. REMICADE [Suspect]
     Indication: CROHN^S DISEASE
     Route: 042
     Dates: start: 20070207
  2. TRAMACET [Concomitant]
     Route: 065

REACTIONS (4)
  - Bone disorder [Unknown]
  - Kidney infection [Unknown]
  - Joint injury [Unknown]
  - Pyrexia [Unknown]
